FAERS Safety Report 7318516-7 (Version None)
Quarter: 2011Q1

REPORT INFORMATION
  Report Type: 
  Country: None (occurrence: None)
  Receive Date: 20110228
  Receipt Date: 20110222
  Transmission Date: 20110831
  Serious: Yes (Other)
  Sender: FDA-Public Use
  Company Number: US-PFIZER INC-2011039353

PATIENT
  Age: 71 Year
  Sex: Male

DRUGS (1)
  1. QUINAPRIL HCL [Suspect]
     Indication: HYPERTENSION

REACTIONS (1)
  - SYNCOPE [None]
